FAERS Safety Report 19847064 (Version 1)
Quarter: 2021Q3

REPORT INFORMATION
  Report Type: Spontaneous
  Country: ER (occurrence: ER)
  Receive Date: 20210917
  Receipt Date: 20210917
  Transmission Date: 20211014
  Serious: Yes (Death, Other)
  Sender: FDA-Public Use
  Company Number: ER-SUN PHARMACEUTICAL INDUSTRIES LTD-2021R1-310406

PATIENT
  Age: 52 Year
  Sex: Male

DRUGS (2)
  1. HYOSCINE [Concomitant]
     Active Substance: SCOPOLAMINE
     Indication: PEPTIC ULCER
     Dosage: UNK
     Route: 065
  2. RANITIDINE. [Suspect]
     Active Substance: RANITIDINE
     Indication: PEPTIC ULCER
     Dosage: UNK,50MG
     Route: 040

REACTIONS (2)
  - Medication error [Unknown]
  - Cardiac arrest [Fatal]
